FAERS Safety Report 7238392-0 (Version None)
Quarter: 2011Q1

REPORT INFORMATION
  Report Type: 
  Country: None (occurrence: None)
  Receive Date: 20110119
  Receipt Date: 20110119
  Transmission Date: 20110831
  Serious: Yes (Disabling)
  Sender: FDA-Public Use
  Company Number: None

PATIENT
  Sex: Male
  Weight: 104.3273 kg

DRUGS (2)
  1. LUPRON DEPOT [Suspect]
     Indication: PROSTATE CANCER METASTATIC
     Dosage: MONTHLY/1 YR IMPLA IM
     Route: 030
     Dates: start: 20030101, end: 20100301
  2. TRELSTAR [Suspect]
     Indication: PROSTATE CANCER METASTATIC
     Dosage: 1 MONTH DOSE IM
     Route: 030
     Dates: start: 20100301, end: 20100401

REACTIONS (3)
  - TYPE 2 DIABETES MELLITUS [None]
  - HYPERSENSITIVITY [None]
  - SKIN LESION [None]
